FAERS Safety Report 22248647 (Version 1)
Quarter: 2023Q2

REPORT INFORMATION
  Report Type: Spontaneous
  Country: US (occurrence: US)
  Receive Date: 20230425
  Receipt Date: 20230425
  Transmission Date: 20230722
  Serious: No
  Sender: FDA-Public Use
  Company Number: US-drreddys-SPO/USA/23/0163751

PATIENT
  Age: 26 Year

DRUGS (1)
  1. ZENATANE [Suspect]
     Active Substance: ISOTRETINOIN
     Indication: Product used for unknown indication
     Dosage: RMA ISSUE DATE: 27 DECEMBER 2022 01:03:38 PM, 24 FEBRUARY 2023 02:05:22 PM

REACTIONS (1)
  - Treatment noncompliance [Unknown]
